FAERS Safety Report 20116007 (Version 1)
Quarter: 2021Q4

REPORT INFORMATION
  Report Type: Spontaneous
  Country: US (occurrence: US)
  Receive Date: 20211126
  Receipt Date: 20211126
  Transmission Date: 20220303
  Serious: Yes (Other)
  Sender: FDA-Public Use
  Company Number: US-NOVITIUMPHARMA-2021USNVP00107

PATIENT
  Age: 54 Year
  Sex: Male

DRUGS (1)
  1. SILDENAFIL CITRATE [Suspect]
     Active Substance: SILDENAFIL CITRATE
     Indication: Erectile dysfunction

REACTIONS (2)
  - Iridocyclitis [Recovering/Resolving]
  - Macular oedema [Recovering/Resolving]
